FAERS Safety Report 7681816-5 (Version None)
Quarter: 2011Q3

REPORT INFORMATION
  Report Type: 
  Country: None (occurrence: None)
  Receive Date: 20110812
  Receipt Date: 20100202
  Transmission Date: 20111222
  Serious: No
  Sender: FDA-Public Use
  Company Number: US-BAYER-201013386NA

PATIENT
  Age: 42 Year
  Sex: Female

DRUGS (2)
  1. MIRENA [Suspect]
     Indication: CONTRACEPTION
     Route: 015
     Dates: start: 20100118, end: 20100121
  2. MIRENA [Suspect]
     Route: 015
     Dates: start: 20100121

REACTIONS (3)
  - DEVICE EXPULSION [None]
  - UTERINE PAIN [None]
  - UTERINE SPASM [None]
